FAERS Safety Report 6379215-1 (Version None)
Quarter: 2009Q3

REPORT INFORMATION
  Report Type: 
  Country: None (occurrence: None)
  Receive Date: 20090923
  Receipt Date: 20090909
  Transmission Date: 20100115
  Serious: Yes (Hospitalization, Congenital Anomaly)
  Sender: FDA-Public Use
  Company Number: 8051917

PATIENT
  Age: 16 Year
  Sex: Male
  Weight: 74.8 kg

DRUGS (2)
  1. KEPPRA [Suspect]
     Indication: CONVULSION
     Dosage: 1500 MG 2/D PO
     Route: 048
     Dates: start: 20090801
  2. KEPPRA [Suspect]
     Indication: CONVULSION
     Dosage: 1000 MG 2/D PO
     Route: 048
     Dates: start: 20090301, end: 20090801

REACTIONS (3)
  - ALOPECIA [None]
  - ARTERIOVENOUS MALFORMATION [None]
  - CONVULSION [None]
